FAERS Safety Report 4846591-8 (Version None)
Quarter: 2005Q4

REPORT INFORMATION
  Report Type: 
  Country: None (occurrence: None)
  Receive Date: 20051202
  Receipt Date: 20051128
  Transmission Date: 20060501
  Serious: Yes (Other)
  Sender: FDA-Public Use
  Company Number: US-2005-010739

PATIENT
  Age: 47 Year
  Sex: Female
  Weight: 81.6 kg

DRUGS (15)
  1. BETASERON [Suspect]
     Indication: SECONDARY PROGRESSIVE MULTIPLE SCLEROSIS
     Dosage: 8 MIU, EVERY 2D, SUBCUTANEOUS
     Route: 058
     Dates: start: 20040701, end: 20050111
  2. REMERON [Concomitant]
  3. DOXEPIN (DOXEPIN) [Concomitant]
  4. XANAX [Concomitant]
  5. QUININE SULFATE [Concomitant]
  6. VICODIN [Concomitant]
  7. OXYCONTIN [Concomitant]
  8. FLEXERIL [Concomitant]
  9. VITAMIN B COMPLEX CAP [Concomitant]
  10. SOY BRAN TABS [Concomitant]
  11. GARLIC (ALLIUM SATIVUM) [Concomitant]
  12. CAYENNE [Concomitant]
  13. LECITHIN, KELP AND CIDER VINEGAR COMPLEX [Concomitant]
  14. GREEN TEA CAPSULES [Concomitant]
  15. MULTIVITAMINS WITH MINERALS [Concomitant]

REACTIONS (12)
  - AXILLARY MASS [None]
  - HAEMORRHAGIC CYST [None]
  - HYPOAESTHESIA [None]
  - IMMOBILE [None]
  - OVARIAN CYST [None]
  - PAIN [None]
  - PAIN IN EXTREMITY [None]
  - PARALYSIS [None]
  - SKIN LESION [None]
  - SWELLING [None]
  - UTERINE CYST [None]
  - UTERINE HAEMORRHAGE [None]
